FAERS Safety Report 11490951 (Version 1)
Quarter: 2015Q3

REPORT INFORMATION
  Report Type: Report from Study
  Country: JP (occurrence: JP)
  Receive Date: 20150910
  Receipt Date: 20150910
  Transmission Date: 20151125
  Serious: Yes (Hospitalization)
  Sender: FDA-Public Use
  Company Number: JP-ARIAD-2013JP002320

PATIENT
  Age: 67 Year
  Sex: Male
  Weight: 68 kg

DRUGS (19)
  1. PONATINIB [Suspect]
     Active Substance: PONATINIB
     Dosage: 15 MG, 1 IN 2 D
     Route: 048
     Dates: start: 20141218
  2. PONATINIB [Suspect]
     Active Substance: PONATINIB
     Dosage: 15 MG, 1 IN 3 D
     Route: 048
     Dates: start: 20150722
  3. FLUITRAN [Concomitant]
     Active Substance: TRICHLORMETHIAZIDE
     Indication: HYPERTENSION
     Dosage: 2 MG, QD
     Route: 048
  4. ALOSITOL [Concomitant]
     Active Substance: ALLOPURINOL
     Indication: HYPERURICAEMIA
     Dosage: 100 MG, QD
     Route: 048
  5. CRAVIT [Concomitant]
     Active Substance: LEVOFLOXACIN
     Indication: EYE DISORDER
     Dosage: 1 GTT, TID
     Route: 047
     Dates: start: 20130520
  6. ALOSENN [Concomitant]
     Active Substance: SENNA LEAF
     Indication: CONSTIPATION
     Dosage: 1 SACHET, QD
     Route: 048
  7. PONATINIB [Suspect]
     Active Substance: PONATINIB
     Indication: CHRONIC MYELOID LEUKAEMIA
     Dosage: 45 MG, QD
     Route: 048
     Dates: start: 20130213, end: 20130815
  8. PONATINIB [Suspect]
     Active Substance: PONATINIB
     Dosage: 15 MG,
     Route: 048
     Dates: start: 20140823
  9. PONATINIB [Suspect]
     Active Substance: PONATINIB
     Dosage: 15 MG, 1 IN3 D
     Route: 048
     Dates: start: 20150426, end: 201507
  10. DIOVAN [Concomitant]
     Active Substance: VALSARTAN
     Indication: HYPERTENSION
     Dosage: 160 MG, BID
     Route: 048
  11. NOVOLIN N [Concomitant]
     Active Substance: INSULIN HUMAN
     Indication: DIABETES MELLITUS
     Dosage: 22 UNITS, BID
     Route: 058
     Dates: end: 20130823
  12. HYALEIN [Concomitant]
     Active Substance: HYALURONATE SODIUM
     Indication: EYE DISORDER
     Dosage: 1 GTT, 5 TIMES/DAY
     Route: 047
     Dates: start: 20130520
  13. WYTENS [Concomitant]
     Indication: HYPERTENSION
     Dosage: 4 MG, BID
     Route: 048
  14. THYRADIN-S [Concomitant]
     Active Substance: LEVOTHYROXINE
     Indication: HYPOTHYROIDISM
     Dosage: 25 ?G, QD
     Route: 048
     Dates: start: 20130711
  15. AMLODIPINE [Concomitant]
     Active Substance: AMLODIPINE BESYLATE
     Indication: HYPERTENSION
     Dosage: 5 MG, BID
     Route: 048
  16. NIFEDIPINE. [Concomitant]
     Active Substance: NIFEDIPINE
     Indication: HYPERTENSION
     Dosage: 40 MG, QD
     Route: 048
  17. MOHRUS [Concomitant]
     Active Substance: KETOPROFEN
     Indication: BACK PAIN
     Dosage: 1-2 SHEETS, QD
     Route: 062
  18. PONATINIB [Suspect]
     Active Substance: PONATINIB
     Dosage: 45 MG
     Route: 048
     Dates: start: 20130905
  19. PONATINIB [Suspect]
     Active Substance: PONATINIB
     Dosage: 30 MG,
     Route: 048
     Dates: start: 20131024

REACTIONS (1)
  - Brain stem infarction [Recovered/Resolved with Sequelae]

NARRATIVE: CASE EVENT DATE: 20130814
